FAERS Safety Report 12920305 (Version 11)
Quarter: 2017Q1

REPORT INFORMATION
  Report Type: Report from Study
  Country: IL (occurrence: IL)
  Receive Date: 20161108
  Receipt Date: 20170316
  Transmission Date: 20170428
  Serious: Yes (Hospitalization)
  Sender: FDA-Public Use
  Company Number: IL-B.I. PHARMACEUTICALS,INC./RIDGEFIELD-2016-BI-072332

PATIENT
  Age: 88 Year
  Sex: Male
  Weight: 52 kg

DRUGS (10)
  1. BIBW 2992 [Suspect]
     Active Substance: AFATINIB
     Indication: EGFR GENE MUTATION
  2. BONDORMIN [Concomitant]
     Active Substance: BROTIZOLAM
     Indication: INSOMNIA
     Route: 048
  3. JANUVIA [Concomitant]
     Active Substance: SITAGLIPTIN PHOSPHATE
     Indication: DIABETES MELLITUS
     Route: 048
     Dates: start: 20130101
  4. PRAMIN [Concomitant]
     Indication: NAUSEA
     Route: 048
     Dates: start: 20161022
  5. CARDILOC [Concomitant]
     Active Substance: BISOPROLOL FUMARATE
     Indication: ATRIAL FIBRILLATION
     Route: 048
     Dates: start: 20140919
  6. CLEXANE [Concomitant]
     Active Substance: ENOXAPARIN SODIUM
     Indication: ATRIAL FIBRILLATION
     Route: 058
     Dates: start: 20140918
  7. HIPREX [Concomitant]
     Active Substance: METHENAMINE HIPPURATE
     Indication: PROPHYLAXIS
     Route: 048
  8. LANTON [Concomitant]
     Indication: DYSPEPSIA
     Route: 048
     Dates: start: 20140203
  9. BIBW 2992 [Suspect]
     Active Substance: AFATINIB
     Indication: NON-SMALL CELL LUNG CANCER STAGE IV
     Route: 048
     Dates: start: 20140122
  10. LOSARTAN POTASSIUM AND HYDROCHLOROTHIAZIDE [Concomitant]
     Active Substance: HYDROCHLOROTHIAZIDE\LOSARTAN POTASSIUM
     Indication: HYPERTENSION
     Route: 048
     Dates: start: 20140919

REACTIONS (5)
  - Clostridium difficile colitis [Recovered/Resolved]
  - Urinary tract infection [Recovered/Resolved]
  - Cellulitis [Recovered/Resolved]
  - Bacteraemia [Recovered/Resolved]
  - Pneumonia [Recovered/Resolved]

NARRATIVE: CASE EVENT DATE: 20161008
